FAERS Safety Report 8735334 (Version 3)
Quarter: 2013Q4

REPORT INFORMATION
  Report Type: Spontaneous
  Country: US (occurrence: US)
  Receive Date: 20120822
  Receipt Date: 20131031
  Transmission Date: 20140711
  Serious: Yes (Hospitalization)
  Sender: FDA-Public Use
  Company Number: US-009507513-1207USA008318

PATIENT
  Age: 20 Year
  Sex: Female
  Weight: 104.31 kg

DRUGS (2)
  1. IMPLANON [Suspect]
     Indication: CONTRACEPTION
     Dosage: UNK
     Dates: start: 20111018, end: 20120720
  2. IMPLANON [Suspect]
     Dosage: UNK
     Dates: start: 2008, end: 201110

REACTIONS (31)
  - Skin discolouration [Not Recovered/Not Resolved]
  - Oedema peripheral [Not Recovered/Not Resolved]
  - Vomiting [Not Recovered/Not Resolved]
  - Implant site bruising [Not Recovered/Not Resolved]
  - Menorrhagia [Not Recovered/Not Resolved]
  - Device breakage [Unknown]
  - Inappropriate schedule of drug administration [Unknown]
  - Pain in extremity [Unknown]
  - Burning sensation [Recovering/Resolving]
  - Headache [Unknown]
  - Weight increased [Unknown]
  - Acne [Unknown]
  - Breast pain [Unknown]
  - Nausea [Unknown]
  - Abdominal pain [Unknown]
  - Dizziness [Unknown]
  - Back pain [Unknown]
  - Emotional disorder [Unknown]
  - Depression [Unknown]
  - Implant site pain [Unknown]
  - Sexual dysfunction [Unknown]
  - Vulvovaginal discomfort [Unknown]
  - Muscle injury [Not Recovered/Not Resolved]
  - Metrorrhagia [Unknown]
  - Pyrexia [Unknown]
  - Blood iron decreased [Unknown]
  - Rash macular [Unknown]
  - Fungal infection [Unknown]
  - Urinary tract infection [Unknown]
  - Menorrhagia [Unknown]
  - Menstruation irregular [Unknown]
